FAERS Safety Report 4864501-4 (Version None)
Quarter: 2005Q4

REPORT INFORMATION
  Report Type: 
  Country: None (occurrence: None)
  Receive Date: 20051222
  Receipt Date: 20050818
  Transmission Date: 20060501
  Serious: Yes (Disabling)
  Sender: FDA-Public Use
  Company Number: FI-BRISTOL-MYERS SQUIBB COMPANY-13082227

PATIENT
  Age: 16 Year
  Sex: Female

DRUGS (3)
  1. ARIPIPRAZOLE [Suspect]
     Indication: MAJOR DEPRESSION
     Dosage: DAILY DOSE: 5-10 MG
     Dates: start: 20050422, end: 20050818
  2. OLANZAPINE [Suspect]
  3. FLUOXETINE HCL [Suspect]
     Dosage: DAILY DOSE: 5-10 MG PER DAY
     Dates: start: 20050329, end: 20050510

REACTIONS (3)
  - BLOOD PROLACTIN INCREASED [None]
  - SLEEP DISORDER [None]
  - WEIGHT INCREASED [None]
